FAERS Safety Report 6266957-1 (Version None)
Quarter: 2009Q3

REPORT INFORMATION
  Report Type: 
  Country: None (occurrence: None)
  Receive Date: 20090714
  Receipt Date: 20090701
  Transmission Date: 20100115
  Serious: Yes (Hospitalization)
  Sender: FDA-Public Use
  Company Number: GB-ROCHE-634242

PATIENT
  Sex: Female

DRUGS (11)
  1. PEG-INTERFERON ALFA 2A (RO 25-8310) [Suspect]
     Route: 058
     Dates: start: 20090505
  2. RIBAVIRIN [Suspect]
     Indication: THROMBOCYTOPENIA
     Route: 048
     Dates: start: 20090505
  3. BLINDED ELTROMBOPAG [Suspect]
     Indication: THROMBOCYTOPENIA
     Route: 048
     Dates: start: 20090505
  4. ELTROMBOPAG [Suspect]
     Indication: THROMBOCYTOPENIA
     Dosage: VARIABLE DOSES PER DAY
     Route: 048
     Dates: start: 20090320, end: 20090418
  5. ELTROMBOPAG [Suspect]
     Route: 048
     Dates: start: 20090418, end: 20090505
  6. CALCIUM CARBONATE [Concomitant]
     Dates: start: 20031101, end: 20090513
  7. CALCIUM CARBONATE [Concomitant]
     Dates: start: 20090519
  8. SODIUM CHLORIDE [Concomitant]
     Dates: start: 20090514
  9. PANTOPRAZOLE SODIUM [Concomitant]
     Dates: start: 20090521
  10. ZINCOVIT [Concomitant]
     Dates: start: 20090519
  11. PROPRANOLOL HCL [Concomitant]
     Dates: start: 20090520

REACTIONS (5)
  - COLITIS [None]
  - NEUTROPENIA [None]
  - PYREXIA [None]
  - RENAL FAILURE [None]
  - URINARY TRACT INFECTION [None]
